FAERS Safety Report 6839249-7 (Version None)
Quarter: 2010Q3

REPORT INFORMATION
  Report Type: 
  Country: None (occurrence: None)
  Receive Date: 20100708
  Receipt Date: 20100628
  Transmission Date: 20110219
  Serious: Yes (Disabling)
  Sender: FDA-Public Use
  Company Number: AUR-APL-2010-01660

PATIENT
  Age: 31 Year

DRUGS (2)
  1. CIPROFLOXACIN HCL [Suspect]
     Indication: INFECTION
     Dosage: 250MG, BID, ORAL
     Route: 048
  2. OLANZPINE [Concomitant]

REACTIONS (1)
  - PSYCHOTIC DISORDER [None]
